FAERS Safety Report 5862793-6 (Version None)
Quarter: 2008Q3

REPORT INFORMATION
  Report Type: 
  Country: None (occurrence: None)
  Receive Date: 20080828
  Receipt Date: 20080815
  Transmission Date: 20090109
  Serious: Yes (Other)
  Sender: FDA-Public Use
  Company Number: JP-BRISTOL-MYERS SQUIBB COMPANY-14173736

PATIENT
  Age: 67 Year
  Sex: Male
  Weight: 47 kg

DRUGS (8)
  1. ABILIFY [Suspect]
     Indication: SCHIZOPHRENIA
     Dosage: DOSE DECREASED TO 6 MG DAILY FROM 12-JUN-2008 THROUGH 25-JUN-2008.
     Route: 048
     Dates: start: 20071003, end: 20080611
  2. BROTIZOLAM [Concomitant]
     Dosage: TAB
  3. FLUNITRAZEPAM [Concomitant]
     Dosage: TAB
  4. ALOSENN [Concomitant]
  5. PURSENNID [Concomitant]
     Dosage: TAB
  6. ZYPREXA [Concomitant]
     Dates: end: 20080709
  7. SEROQUEL [Concomitant]
     Dates: end: 20080709
  8. LORAZEPAM [Concomitant]
     Dosage: TAB
     Dates: start: 20071003, end: 20080625

REACTIONS (5)
  - BLOOD GLUCOSE INCREASED [None]
  - HYPERKALAEMIA [None]
  - HYPONATRAEMIA [None]
  - ILEUS PARALYTIC [None]
  - WATER INTOXICATION [None]
